FAERS Safety Report 8491260-9 (Version None)
Quarter: 2012Q3

REPORT INFORMATION
  Report Type: 
  Country: None (occurrence: None)
  Receive Date: 20120706
  Receipt Date: 20120625
  Transmission Date: 20120928
  Serious: Yes (Hospitalization, Other)
  Sender: FDA-Public Use
  Company Number: US-ASTRAZENECA-2012SE20987

PATIENT
  Age: 53 Year
  Sex: Male

DRUGS (3)
  1. PRILOSEC OTC [Suspect]
     Route: 048
  2. PROTONIX [Concomitant]
  3. NEXIUM [Concomitant]

REACTIONS (9)
  - GASTRIC ULCER [None]
  - OESOPHAGITIS [None]
  - HAEMORRHOIDS [None]
  - PEPTIC ULCER [None]
  - GASTROINTESTINAL HAEMORRHAGE [None]
  - COLONIC POLYP [None]
  - ANAEMIA [None]
  - DIVERTICULUM [None]
  - HIATUS HERNIA [None]
